FAERS Safety Report 19816291 (Version 3)
Quarter: 2022Q1

REPORT INFORMATION
  Report Type: Spontaneous
  Country: MX (occurrence: None)
  Receive Date: 20210910
  Receipt Date: 20220213
  Transmission Date: 20220424
  Serious: Yes (Hospitalization)
  Sender: FDA-Public Use
  Company Number: MX-ROCHE-2906313

PATIENT
  Sex: Male

DRUGS (1)
  1. ACTEMRA [Suspect]
     Active Substance: TOCILIZUMAB
     Indication: COVID-19
     Dosage: INJECTION 200 MG/10 ML VIAL
     Route: 042

REACTIONS (3)
  - Dyspnoea [Recovered/Resolved]
  - Product counterfeit [Unknown]
  - Off label use [Unknown]
